FAERS Safety Report 8540309-3 (Version None)
Quarter: 2012Q3

REPORT INFORMATION
  Report Type: 
  Country: None (occurrence: None)
  Receive Date: 20120726
  Receipt Date: 20120716
  Transmission Date: 20120928
  Serious: Yes (Death)
  Sender: FDA-Public Use
  Company Number: ZA-ROCHE-1091841

PATIENT

DRUGS (2)
  1. ALTEPLASE [Suspect]
     Indication: ISCHAEMIC STROKE
     Dosage: 10 PERCENT OF THE DOSE OF 0.9 MG/KG ADMINISTERED AS BOLUS
     Route: 040
  2. ALTEPLASE [Suspect]
     Dosage: 90 PERCENT OF THE DOSE OF 0.9 MG/KG INFUSION OVER 1 HOUR
     Route: 042

REACTIONS (1)
  - HAEMORRHAGE INTRACRANIAL [None]
